FAERS Safety Report 10570528 (Version 1)
Quarter: 2014Q4

REPORT INFORMATION
  Report Type: Spontaneous
  Country: US (occurrence: None)
  Receive Date: 20141106
  Receipt Date: 20141106
  Transmission Date: 20150529
  Serious: Yes (Other)
  Sender: FDA-Public Use
  Company Number: None

PATIENT
  Age: 69 Year
  Sex: Male

DRUGS (1)
  1. AMLODIPINE [Suspect]
     Active Substance: AMLODIPINE BESYLATE
     Indication: HYPERTENSION
     Dosage: 1 PER DAY, ONCE DAILY, TAKEN BY MOUTH
     Route: 048
     Dates: start: 20140902, end: 20141029

REACTIONS (2)
  - Chest discomfort [None]
  - Heart rate irregular [None]

NARRATIVE: CASE EVENT DATE: 20141021
